FAERS Safety Report 22384813 (Version 3)
Quarter: 2023Q2

REPORT INFORMATION
  Report Type: Report from Study
  Country: GB (occurrence: GB)
  Receive Date: 20230530
  Receipt Date: 20230621
  Transmission Date: 20230721
  Serious: Yes (Other)
  Sender: FDA-Public Use
  Company Number: GB-SAMSUNG BIOEPIS-SB-2023-14206

PATIENT
  Age: 43 Year
  Sex: Female

DRUGS (5)
  1. IMRALDI [Suspect]
     Active Substance: ADALIMUMAB
     Indication: Crohn^s disease
     Dosage: W0
     Route: 058
     Dates: start: 20230522
  2. IMRALDI [Suspect]
     Active Substance: ADALIMUMAB
     Dosage: W2
     Route: 058
  3. IMRALDI [Suspect]
     Active Substance: ADALIMUMAB
     Dosage: W4
     Route: 058
  4. IMRALDI [Suspect]
     Active Substance: ADALIMUMAB
     Dosage: 40MG/0.8ML;
     Route: 058
  5. IMRALDI [Suspect]
     Active Substance: ADALIMUMAB
     Dosage: UNKNOWN
     Route: 065

REACTIONS (7)
  - Respiratory rate increased [Unknown]
  - Feeling abnormal [Unknown]
  - Feeling hot [Unknown]
  - Headache [Unknown]
  - Dizziness [Unknown]
  - Blood pressure increased [Unknown]
  - Flushing [Unknown]

NARRATIVE: CASE EVENT DATE: 20230522
